FAERS Safety Report 18232965 (Version 1)
Quarter: 2020Q3

REPORT INFORMATION
  Report Type: Spontaneous
  Country: US (occurrence: US)
  Receive Date: 20200904
  Receipt Date: 20200904
  Transmission Date: 20201103
  Serious: Yes (Hospitalization)
  Sender: FDA-Public Use
  Company Number: None

PATIENT
  Age: 72 Year
  Sex: Male
  Weight: 105 kg

DRUGS (3)
  1. APIXABAN (APIXABAN 5MG TAB) [Suspect]
     Active Substance: APIXABAN
     Indication: CARDIOVASCULAR DISORDER
     Route: 048
     Dates: start: 20190615, end: 20200701
  2. APIXABAN (APIXABAN 5MG TAB) [Suspect]
     Active Substance: APIXABAN
     Indication: CORONARY ARTERY DISEASE
     Route: 048
     Dates: start: 20190615, end: 20200701
  3. APIXABAN (APIXABAN 5MG TAB) [Suspect]
     Active Substance: APIXABAN
     Indication: CORONARY ARTERY BYPASS
     Route: 048
     Dates: start: 20190615, end: 20200701

REACTIONS (2)
  - Atrial thrombosis [None]
  - Systemic inflammatory response syndrome [None]

NARRATIVE: CASE EVENT DATE: 20200701
